FAERS Safety Report 8906273 (Version 1)
Quarter: 2012Q4

REPORT INFORMATION
  Report Type: Spontaneous
  Country: US (occurrence: None)
  Receive Date: 20121112
  Receipt Date: 20121112
  Transmission Date: 20130627
  Serious: Yes (Hospitalization, Other)
  Sender: FDA-Public Use
  Company Number: None

PATIENT
  Age: 72 Year
  Sex: Male
  Weight: 66.4 kg

DRUGS (22)
  1. MIDAZOLAM [Suspect]
     Indication: SEDATION
     Route: 042
     Dates: start: 20121107, end: 20121107
  2. CEFEPIME [Concomitant]
  3. FLUMAZENIL [Concomitant]
  4. METHYLPRENISOLONE [Concomitant]
  5. ALBUTEROL INHALA [Concomitant]
  6. LIDOCAINE [Concomitant]
  7. FENTANYL [Concomitant]
  8. SODIUM CHLORIDE [Concomitant]
  9. ZITHROMAX [Concomitant]
  10. CLOTRIMAZOLE [Concomitant]
  11. LOZENGE [Concomitant]
  12. MAGNESIUM OXIDE [Concomitant]
  13. MULTIVITAMIN [Concomitant]
  14. CELLCEPT [Concomitant]
  15. PROPANOLOL [Concomitant]
  16. BACTRIM DS [Concomitant]
  17. VORICONAZOLE [Concomitant]
  18. ASPIRIN [Concomitant]
  19. BISACODYL [Concomitant]
  20. CALCIUM AND VITAMIN D [Concomitant]
  21. CYCLOSPORINE [Concomitant]
  22. ZOLOFT [Concomitant]

REACTIONS (3)
  - Aphasia [None]
  - Movement disorder [None]
  - Nervous system disorder [None]
